FAERS Safety Report 25289206 (Version 2)
Quarter: 2025Q2

REPORT INFORMATION
  Report Type: Report from Study
  Country: US (occurrence: US)
  Receive Date: 20250509
  Receipt Date: 20250611
  Transmission Date: 20250717
  Serious: Yes (Other)
  Sender: AMGEN
  Company Number: US-AMGEN-USASL2024211611

PATIENT
  Age: 72 Year
  Sex: Male

DRUGS (2)
  1. TEPEZZA [Suspect]
     Active Substance: TEPROTUMUMAB-TRBW
     Indication: Endocrine ophthalmopathy
     Dosage: 10 MILLIGRAM/KILOGRAM, Q3WK (EVERY 3 WEEKS 10 MG/KG X 1, THEN 20MG/KG INFUSIONS 2-8)
     Route: 040
     Dates: start: 20240911
  2. TEPEZZA [Suspect]
     Active Substance: TEPROTUMUMAB-TRBW
     Indication: Toxic goitre
     Dosage: 20 MILLIGRAM/KILOGRAM, Q3WK
     Route: 040
     Dates: start: 2024, end: 20250205

REACTIONS (2)
  - Diabetes mellitus [Unknown]
  - Muscle spasms [Unknown]
